FAERS Safety Report 22020384 (Version 3)
Quarter: 2023Q2

REPORT INFORMATION
  Report Type: Spontaneous
  Country: US (occurrence: US)
  Receive Date: 20230222
  Receipt Date: 20230503
  Transmission Date: 20230721
  Serious: No
  Sender: FDA-Public Use
  Company Number: US-SA-SAC20230220000707

PATIENT
  Age: 62 Year
  Sex: Female
  Weight: 77 kg

DRUGS (1)
  1. DUPIXENT [Suspect]
     Active Substance: DUPILUMAB
     Indication: Dermatitis atopic
     Dosage: 300 MG, QOW
     Route: 058
     Dates: start: 20230129, end: 2023

REACTIONS (13)
  - Illness [Unknown]
  - Paranasal sinus discomfort [Unknown]
  - Headache [Unknown]
  - Burning sensation [Unknown]
  - Epistaxis [Not Recovered/Not Resolved]
  - Aphonia [Unknown]
  - Scab [Unknown]
  - Hypoaesthesia [Not Recovered/Not Resolved]
  - Nasopharyngitis [Not Recovered/Not Resolved]
  - Pruritus [Not Recovered/Not Resolved]
  - Oropharyngeal pain [Unknown]
  - Rash erythematous [Not Recovered/Not Resolved]
  - Rash macular [Unknown]

NARRATIVE: CASE EVENT DATE: 20230131
